FAERS Safety Report 21785360 (Version 1)
Quarter: 2022Q4

REPORT INFORMATION
  Report Type: Spontaneous
  Country: US (occurrence: None)
  Receive Date: 20221223
  Receipt Date: 20221223
  Transmission Date: 20230113
  Serious: No
  Sender: FDA-Public Use
  Company Number: None

PATIENT
  Age: 62 Year
  Sex: Female

DRUGS (1)
  1. COSENTYX [Suspect]
     Active Substance: SECUKINUMAB
     Dosage: OTHER QUANTITY : 150;?OTHER FREQUENCY : OTHER;?
     Route: 058

REACTIONS (4)
  - Anaemia [None]
  - Transfusion [None]
  - Oedema [None]
  - Back pain [None]

NARRATIVE: CASE EVENT DATE: 20221215
